FAERS Safety Report 9731565 (Version 1)
Quarter: 2013Q4

REPORT INFORMATION
  Report Type: Spontaneous
  Country: US (occurrence: US)
  Receive Date: 20131203
  Receipt Date: 20131203
  Transmission Date: 20140711
  Serious: No
  Sender: FDA-Public Use
  Company Number: US-BAXTER-2013BAX047856

PATIENT
  Sex: Female

DRUGS (1)
  1. TISSEEL VH S/D [Suspect]
     Indication: PRODUCT USED FOR UNKNOWN INDICATION
     Dates: start: 20131127, end: 20131127

REACTIONS (2)
  - Expired drug administered [Recovered/Resolved]
  - No adverse event [Recovered/Resolved]
